FAERS Safety Report 6783223-6 (Version None)
Quarter: 2010Q2

REPORT INFORMATION
  Report Type: 
  Country: None (occurrence: None)
  Receive Date: 20100622
  Receipt Date: 20100614
  Transmission Date: 20101027
  Serious: Yes (Hospitalization)
  Sender: FDA-Public Use
  Company Number: DE-JNJFOC-20100605191

PATIENT
  Age: 55 Year
  Sex: Male
  Weight: 87.5 kg

DRUGS (7)
  1. RISPERDAL [Suspect]
     Indication: DRUG USE FOR UNKNOWN INDICATION
     Route: 048
     Dates: start: 20100325, end: 20100414
  2. RISPERDAL [Suspect]
     Route: 048
     Dates: start: 20100325, end: 20100414
  3. RISPERDAL [Suspect]
     Route: 048
     Dates: start: 20100325, end: 20100414
  4. RISPERDAL [Suspect]
     Route: 048
     Dates: start: 20100325, end: 20100414
  5. RISPERDAL [Suspect]
     Route: 048
     Dates: start: 20100325, end: 20100414
  6. APROVEL [Concomitant]
     Route: 048
     Dates: start: 20100210
  7. ZYPREXA [Concomitant]
     Route: 048
     Dates: start: 20100212, end: 20100330

REACTIONS (2)
  - DYSARTHRIA [None]
  - DYSKINESIA [None]
